FAERS Safety Report 8554415-0 (Version None)
Quarter: 2012Q3

REPORT INFORMATION
  Report Type: 
  Country: None (occurrence: None)
  Receive Date: 20120731
  Receipt Date: 20120723
  Transmission Date: 20120928
  Serious: Yes (Other)
  Sender: FDA-Public Use
  Company Number: JP-VERTEX PHARMACEUTICALS INC.-AE-2012-010961

PATIENT
  Age: 68 Year
  Sex: Female

DRUGS (10)
  1. PEGINTERFERON ALFA-2B [Concomitant]
     Indication: HEPATITIS C
     Route: 058
     Dates: start: 20120606, end: 20120626
  2. TELAVIC (TELAPREVIR) [Suspect]
     Route: 048
     Dates: start: 20120627, end: 20120710
  3. TELAVIC (TELAPREVIR) [Suspect]
     Route: 048
     Dates: start: 20120711, end: 20120717
  4. TELAVIC (TELAPREVIR) [Suspect]
     Route: 048
     Dates: start: 20120718
  5. ALLOPURINOL [Concomitant]
     Route: 048
     Dates: start: 20120620
  6. RIBAVIRIN [Concomitant]
     Route: 048
     Dates: start: 20120718
  7. PEGINTERFERON ALFA-2B [Concomitant]
     Route: 058
     Dates: start: 20120718
  8. RIBAVIRIN [Concomitant]
     Indication: HEPATITIS C
     Route: 048
     Dates: start: 20120606, end: 20120622
  9. TELAVIC (TELAPREVIR) [Suspect]
     Indication: HEPATITIS C
     Route: 048
     Dates: start: 20120606, end: 20120626
  10. PEGINTERFERON ALFA-2B [Concomitant]
     Route: 058
     Dates: start: 20120627, end: 20120717

REACTIONS (1)
  - RETINOPATHY [None]
